FAERS Safety Report 9629768 (Version 2)
Quarter: 2013Q4

REPORT INFORMATION
  Report Type: Spontaneous
  Country: JP (occurrence: JP)
  Receive Date: 20131017
  Receipt Date: 20131022
  Transmission Date: 20140711
  Serious: No
  Sender: FDA-Public Use
  Company Number: JP-GLAXOSMITHKLINE-B0931175A

PATIENT
  Age: 66 Year
  Sex: Female

DRUGS (4)
  1. PAXIL [Suspect]
     Indication: DEPRESSION
     Dosage: 25MG PER DAY
     Route: 048
     Dates: start: 20120910, end: 20131009
  2. PAXIL [Suspect]
     Indication: DEPRESSION
     Route: 048
     Dates: start: 20051029, end: 20120909
  3. DEPAS [Concomitant]
     Dosage: .5MG THREE TIMES PER DAY
     Route: 048
     Dates: start: 20051029
  4. ALOSENN [Concomitant]
     Dosage: .5MG PER DAY
     Route: 048
     Dates: start: 20051029

REACTIONS (2)
  - Myoclonus [Recovered/Resolved]
  - Pyrexia [Recovered/Resolved]
